FAERS Safety Report 15467769 (Version 1)
Quarter: 2018Q4

REPORT INFORMATION
  Report Type: Spontaneous
  Country: US (occurrence: US)
  Receive Date: 20181005
  Receipt Date: 20181005
  Transmission Date: 20190204
  Serious: No
  Sender: FDA-Public Use
  Company Number: US-PFIZER INC-2018397287

PATIENT
  Age: 83 Year
  Sex: Female

DRUGS (1)
  1. ADVIL LIQUI-GELS [Suspect]
     Active Substance: IBUPROFEN
     Dosage: UNK, DAILY (TAKING 2 OR 3 DAILY)

REACTIONS (3)
  - Incorrect product administration duration [Unknown]
  - Blood pressure increased [Unknown]
  - Somnolence [Unknown]
